FAERS Safety Report 6782724-4 (Version None)
Quarter: 2010Q2

REPORT INFORMATION
  Report Type: 
  Country: None (occurrence: None)
  Receive Date: 20100621
  Receipt Date: 20100614
  Transmission Date: 20101027
  Serious: Yes (Hospitalization)
  Sender: FDA-Public Use
  Company Number: PHHO2010DE09025

PATIENT
  Sex: Male

DRUGS (2)
  1. NEORAL [Suspect]
     Indication: LIVER TRANSPLANT
     Dosage: UNK
     Route: 048
  2. NO TREATMENT RECEIVED NOMED [Suspect]

REACTIONS (2)
  - COMPLICATIONS OF TRANSPLANTED LIVER [None]
  - LIVER TRANSPLANT [None]
